FAERS Safety Report 5510301-1 (Version None)
Quarter: 2007Q4

REPORT INFORMATION
  Report Type: 
  Country: None (occurrence: None)
  Receive Date: 20071030
  Receipt Date: 20061026
  Transmission Date: 20080405
  Serious: Yes (Other)
  Sender: FDA-Public Use
  Company Number: HQWYE690227OCT06

PATIENT
  Age: 51 Year
  Sex: Female
  Weight: 103.97 kg

DRUGS (9)
  1. PREMARIN [Suspect]
     Indication: HOT FLUSH
     Dosage: SEE IMAGE
     Route: 048
     Dates: start: 20020101, end: 20040922
  2. PREMARIN [Suspect]
     Indication: HOT FLUSH
     Dosage: SEE IMAGE
     Route: 048
     Dates: end: 20061001
  3. PREMARIN [Suspect]
     Indication: HOT FLUSH
     Dosage: SEE IMAGE
     Route: 048
     Dates: start: 20061001
  4. NORVASC [Concomitant]
  5. KLOR-CON [Concomitant]
  6. CATAPRES [Concomitant]
  7. LABETALOL HCL [Concomitant]
  8. ACETYLSALICYLIC ACID SRT [Concomitant]
  9. HYDROCHLOROTHIAZIDE [Concomitant]

REACTIONS (1)
  - CEREBROVASCULAR ACCIDENT [None]
